FAERS Safety Report 4863139-2 (Version None)
Quarter: 2005Q4

REPORT INFORMATION
  Report Type: 
  Country: None (occurrence: None)
  Receive Date: 20051201
  Receipt Date: 20050608
  Transmission Date: 20060501
  Serious: Yes (Other)
  Sender: FDA-Public Use
  Company Number: 004952

PATIENT
  Age: 50 Year
  Sex: Male

DRUGS (1)
  1. DIAMOX [Suspect]
     Dosage: UNK

REACTIONS (1)
  - APLASTIC ANAEMIA [None]
